FAERS Safety Report 6218293-7 (Version None)
Quarter: 2009Q2

REPORT INFORMATION
  Report Type: 
  Country: None (occurrence: None)
  Receive Date: 20090608
  Receipt Date: 20090424
  Transmission Date: 20091009
  Serious: Yes (Hospitalization)
  Sender: FDA-Public Use
  Company Number: JP-EISAI INC.-E2090-00717-SPO-JP

PATIENT
  Age: 17 Year
  Sex: Female

DRUGS (2)
  1. EXCEGRAN [Suspect]
     Dosage: UNKNOWN
     Route: 048
     Dates: start: 20090327, end: 20090413
  2. EXCEGRAN [Suspect]
     Dates: start: 20090527

REACTIONS (4)
  - GRANULOCYTE COUNT DECREASED [None]
  - PLATELET COUNT DECREASED [None]
  - RASH [None]
  - VOMITING [None]
